FAERS Safety Report 19551736 (Version 1)
Quarter: 2021Q3

REPORT INFORMATION
  Report Type: Spontaneous
  Country: US (occurrence: US)
  Receive Date: 20210715
  Receipt Date: 20210715
  Transmission Date: 20211014
  Serious: Yes (Other)
  Sender: FDA-Public Use
  Company Number: US-ACCORD-231464

PATIENT
  Age: 58 Year
  Sex: Male

DRUGS (1)
  1. HYDROXYCHLOROQUINE [Suspect]
     Active Substance: HYDROXYCHLOROQUINE
     Indication: COVID-19

REACTIONS (2)
  - Optic neuropathy [Unknown]
  - Off label use [Unknown]
